FAERS Safety Report 19101882 (Version 1)
Quarter: 2021Q2

REPORT INFORMATION
  Report Type: Report from Study
  Country: None (occurrence: FR)
  Receive Date: 20210407
  Receipt Date: 20210407
  Transmission Date: 20210717
  Serious: Yes (Hospitalization)
  Sender: FDA-Public Use
  Company Number: FR-ABBVIE-21K-056-3848140-00

PATIENT
  Age: 76 Year
  Sex: Female

DRUGS (4)
  1. DUODOPA [Suspect]
     Active Substance: CARBIDOPA\LEVODOPA
     Indication: PARKINSON^S DISEASE
     Dosage: EXTRA DOSES BETWEEN 2 AND 5 PER DAY.?STRENGTH: 20 MG/ML 5 MG/ML.
     Route: 050
     Dates: start: 201602
  2. MODOPAR [Concomitant]
     Active Substance: BENSERAZIDE HYDROCHLORIDE\LEVODOPA
     Indication: ON AND OFF PHENOMENON
  3. MODOPAR [Concomitant]
     Active Substance: BENSERAZIDE HYDROCHLORIDE\LEVODOPA
     Indication: DYSTONIA
  4. DUODOPA [Suspect]
     Active Substance: CARBIDOPA\LEVODOPA

REACTIONS (9)
  - Fall [Unknown]
  - Device kink [Unknown]
  - Haematoma [Unknown]
  - On and off phenomenon [Unknown]
  - Therapeutic product effect incomplete [Unknown]
  - Balance disorder [Unknown]
  - Ear haemorrhage [Unknown]
  - Muscular weakness [Unknown]
  - Dystonia [Unknown]

NARRATIVE: CASE EVENT DATE: 202103
